FAERS Safety Report 15006305 (Version 3)
Quarter: 2018Q2

REPORT INFORMATION
  Report Type: Report from Study
  Country: US (occurrence: US)
  Receive Date: 20180613
  Receipt Date: 20180618
  Transmission Date: 20180711
  Serious: Yes (Other)
  Sender: FDA-Public Use
  Company Number: PHEH2018US022525

PATIENT
  Sex: Female

DRUGS (1)
  1. EXTAVIA [Suspect]
     Active Substance: INTERFERON BETA-1B
     Indication: PRODUCT USED FOR UNKNOWN INDICATION
     Dosage: 1 ML, QOD
     Route: 058

REACTIONS (4)
  - Device malfunction [Unknown]
  - Disease recurrence [Unknown]
  - Injection site erythema [Unknown]
  - Wrong technique in product usage process [Unknown]
